FAERS Safety Report 6426501 (Version 5)
Quarter: 2013Q2

REPORT INFORMATION
  Report Type: Spontaneous
  Country: US (occurrence: US)
  Receive Date: 20070925
  Receipt Date: 20120515
  Transmission Date: 20140414
  Serious: Yes (Other)
  Sender: FDA-Public Use
  Company Number: PHEH2007US12524

PATIENT
  Age: 67 Year
  Sex: Female
  Weight: 48.5 kg

DRUGS (5)
  1. ZOMETA [Suspect]
     Indication: METASTASES TO BONE
     Route: 042
     Dates: start: 20060607, end: 20070215
  2. SUTENT [Concomitant]
     Dosage: ONE TAB DAILY  FOR 4 WEEKS THEN OFF FOR TWO
     Dates: start: 200605
  3. LEVOTHYROXINE [Concomitant]
  4. ATENOLOL [Concomitant]
  5. QUINAPRIL [Concomitant]

REACTIONS (11)
  - OSTEONECROSIS [Not Recovered/Not Resolved]
  - ORAL DISORDER [Not Recovered/Not Resolved]
  - PAIN [Not Recovered/Not Resolved]
  - ERYTHEMA [Not Recovered/Not Resolved]
  - SWELLING [Not Recovered/Not Resolved]
  - LYMPH NODE PAIN [Not Recovered/Not Resolved]
  - WOUND DEHISCENCE [Not Recovered/Not Resolved]
  - LYMPHADENOPATHY [Not Recovered/Not Resolved]
  - BONE DISORDER [Not Recovered/Not Resolved]
  - IMPAIRED HEALING [Not Recovered/Not Resolved]
  - TOOTH EXTRACTION [None]
